FAERS Safety Report 6654386-8 (Version None)
Quarter: 2010Q1

REPORT INFORMATION
  Report Type: 
  Country: None (occurrence: None)
  Receive Date: 20100324
  Receipt Date: 20100310
  Transmission Date: 20100710
  Serious: Yes (Hospitalization)
  Sender: FDA-Public Use
  Company Number: GB-DEXPHARM-20100329

PATIENT
  Age: 54 Year
  Sex: Male

DRUGS (13)
  1. CHLORHEXIDINE GLUCONATE [Suspect]
     Dosage: TOPICAL
     Route: 061
  2. CLINDAMYCIN [Suspect]
     Indication: CELLULITIS
     Dosage: 500 MG MILLIGRAM(S), ORAL
     Route: 048
     Dates: start: 20090821, end: 20090825
  3. HYDROMOL CREAM ACTIVE SUBSTANCES: ARACHIS OIL, ISOPROPYL MYRISTATE, LI [Suspect]
     Indication: DRY SKIN
     Dosage: TOPICAL
     Route: 061
  4. AMLODIPINE [Concomitant]
  5. CLOPIDOGREL [Concomitant]
  6. DOXAZOSIN [Concomitant]
  7. FLOXACILLIN SODIUM [Concomitant]
  8. IRBESARTAN [Concomitant]
  9. LANSOPRAZOLE [Concomitant]
  10. METFORMIN [Concomitant]
  11. NOVOMIX [Concomitant]
  12. PARACETAMOL [Concomitant]
  13. SIMVASTATIN [Concomitant]

REACTIONS (6)
  - CHILLS [None]
  - DERMATITIS EXFOLIATIVE [None]
  - ERYTHEMA [None]
  - SKIN EXFOLIATION [None]
  - SKIN FISSURES [None]
  - TACHYCARDIA [None]
